FAERS Safety Report 24304321 (Version 2)
Quarter: 2024Q3

REPORT INFORMATION
  Report Type: Spontaneous
  Country: US (occurrence: US)
  Receive Date: 20240910
  Receipt Date: 20240916
  Transmission Date: 20241017
  Serious: Yes (Hospitalization, Other)
  Sender: ELI LILLY AND CO
  Company Number: US-ELI_LILLY_AND_COMPANY-US202409002952

PATIENT
  Age: 61 Year
  Sex: Female

DRUGS (1)
  1. INSULIN LISPRO [Suspect]
     Active Substance: INSULIN LISPRO
     Indication: Type 1 diabetes mellitus
     Dosage: 18 U, UNKNOWN
     Route: 058

REACTIONS (7)
  - Vertigo [Recovered/Resolved]
  - Ketoacidosis [Recovered/Resolved]
  - Coma [Unknown]
  - Sleep disorder due to general medical condition, insomnia type [Recovering/Resolving]
  - Stress [Not Recovered/Not Resolved]
  - Visual impairment [Unknown]
  - Blood glucose fluctuation [Recovering/Resolving]
